FAERS Safety Report 24202654 (Version 1)
Quarter: 2024Q3

REPORT INFORMATION
  Report Type: Spontaneous
  Country: US (occurrence: US)
  Receive Date: 20240813
  Receipt Date: 20240813
  Transmission Date: 20241017
  Serious: Yes (Other)
  Sender: SPECGX
  Company Number: US-SPECGX-T202302458

PATIENT
  Sex: Male

DRUGS (1)
  1. OXYCODONE [Suspect]
     Active Substance: OXYCODONE
     Indication: Back injury
     Dosage: 10 MILLIGRAM
     Route: 065

REACTIONS (3)
  - Toxicity to various agents [Unknown]
  - Abdominal discomfort [Unknown]
  - Diarrhoea [Unknown]
